FAERS Safety Report 24378549 (Version 1)
Quarter: 2024Q3

REPORT INFORMATION
  Report Type: Spontaneous
  Country: CN (occurrence: CN)
  Receive Date: 20240930
  Receipt Date: 20240930
  Transmission Date: 20241017
  Serious: Yes (Other)
  Sender: ENDO
  Company Number: CN-ENDO USA, INC.-2024-003492

PATIENT
  Age: 26 Year
  Sex: Female

DRUGS (6)
  1. ADRENALIN [Suspect]
     Active Substance: EPINEPHRINE
     Indication: Anaphylactic shock
     Dosage: 0.5 MILLIGRAM, UNKNOWN
     Route: 030
  2. ADRENALIN [Suspect]
     Active Substance: EPINEPHRINE
     Dosage: INITIAL RATE OF 4 ML/H, INFUSION OF 2 MG ADRENALINE DILUTED IN 50-ML SALINE
     Route: 041
  3. ADRENALIN [Suspect]
     Active Substance: EPINEPHRINE
     Dosage: UP TO A MAXIMUM OF 6 ML/H, INFUSION OF 2 MG ADRENALINE DILUTED IN 50-ML SALINE
     Route: 041
  4. CLINDAMYCIN [Concomitant]
     Active Substance: CLINDAMYCIN
     Indication: Antibiotic therapy
     Dosage: UNK UNKNOWN, INFUSION
     Route: 041
  5. CEFMETAZOLE [Concomitant]
     Active Substance: CEFMETAZOLE
     Indication: Antibiotic therapy
     Dosage: UNK UNKNOWN, INFUSION
     Route: 041
  6. DEXAMETHASONE [Concomitant]
     Active Substance: DEXAMETHASONE
     Indication: Anaphylactic shock
     Dosage: 5 MILLIGRAM, UNKNOWN
     Route: 042

REACTIONS (1)
  - Blood lactic acid increased [Recovered/Resolved]
